FAERS Safety Report 11916447 (Version 1)
Quarter: 2016Q1

REPORT INFORMATION
  Report Type: Report from Study
  Country: CA (occurrence: CA)
  Receive Date: 20160114
  Receipt Date: 20160114
  Transmission Date: 20160526
  Serious: Yes (Hospitalization)
  Sender: FDA-Public Use
  Company Number: CA-ABBVIE-15K-028-1382951-00

PATIENT
  Sex: Female

DRUGS (2)
  1. HUMIRA [Suspect]
     Active Substance: ADALIMUMAB
     Route: 058
     Dates: start: 2015
  2. HUMIRA [Suspect]
     Active Substance: ADALIMUMAB
     Indication: CROHN^S DISEASE
     Route: 058
     Dates: start: 20110617, end: 2015

REACTIONS (4)
  - Small intestinal obstruction [Unknown]
  - Lymphadenectomy [Unknown]
  - Short-bowel syndrome [Not Recovered/Not Resolved]
  - Fistula [Unknown]

NARRATIVE: CASE EVENT DATE: 2015
